FAERS Safety Report 16584028 (Version 2)
Quarter: 2019Q3

REPORT INFORMATION
  Report Type: Spontaneous
  Country: US (occurrence: US)
  Receive Date: 20190717
  Receipt Date: 20190815
  Transmission Date: 20191004
  Serious: No
  Sender: FDA-Public Use
  Company Number: US-GLAXOSMITHKLINE-US2019123445

PATIENT
  Age: 82 Year
  Sex: Female

DRUGS (1)
  1. ABREVA [Suspect]
     Active Substance: DOCOSANOL
     Indication: ORAL HERPES
     Dosage: UNK

REACTIONS (4)
  - Scab [Recovered/Resolved]
  - Expired product administered [Unknown]
  - Application site haemorrhage [Recovered/Resolved]
  - Oral discomfort [Recovered/Resolved]
